FAERS Safety Report 4921359-2 (Version None)
Quarter: 2006Q1

REPORT INFORMATION
  Report Type: 
  Country: None (occurrence: None)
  Receive Date: 20060222
  Receipt Date: 20060222
  Transmission Date: 20060701
  Serious: Yes (Hospitalization)
  Sender: FDA-Public Use
  Company Number: None

PATIENT
  Age: 62 Year
  Sex: Male
  Weight: 102 kg

DRUGS (13)
  1. METFORMIN [Suspect]
     Indication: DIABETES MELLITUS NON-INSULIN-DEPENDENT
     Dosage: 500 MG PO BID  CHRONIC
     Route: 048
  2. CELECOXIB [Suspect]
     Indication: PAIN
     Dosage: 200 MG PO DAILY  CHRONIC X 1 YE
     Route: 048
  3. ATENOLOL [Concomitant]
  4. CELEBREX [Concomitant]
  5. LOVASTATIN [Concomitant]
  6. CARTIA XT [Concomitant]
  7. COUMADIN [Concomitant]
  8. AMARYL [Concomitant]
  9. CALCIUM GLUCONATE [Concomitant]
  10. NEXIUM [Concomitant]
  11. METFORMIN [Concomitant]
  12. LISINOPRIL / HCT 20/25 [Concomitant]
  13. .. [Concomitant]

REACTIONS (10)
  - ABDOMINAL PAIN [None]
  - ANURIA [None]
  - DIALYSIS [None]
  - GLOMERULAR FILTRATION RATE DECREASED [None]
  - HEPATIC ISCHAEMIA [None]
  - LACTIC ACIDOSIS [None]
  - LIVER FUNCTION TEST ABNORMAL [None]
  - METABOLIC ACIDOSIS [None]
  - RENAL FAILURE ACUTE [None]
  - RENAL TUBULAR NECROSIS [None]
